FAERS Safety Report 12204473 (Version 1)
Quarter: 2016Q1

REPORT INFORMATION
  Report Type: Spontaneous
  Country: US (occurrence: None)
  Receive Date: 20160322
  Receipt Date: 20160322
  Transmission Date: 20160526
  Serious: Yes (Hospitalization)
  Sender: FDA-Public Use
  Company Number: None

PATIENT
  Age: 18 Year
  Sex: Female
  Weight: 41.2 kg

DRUGS (6)
  1. ONCASPAR [Suspect]
     Active Substance: PEGASPARGASE
     Dates: end: 20160216
  2. VINCRISTINE SULFATE. [Suspect]
     Active Substance: VINCRISTINE SULFATE
     Dates: end: 20160304
  3. PREDNISONE. [Suspect]
     Active Substance: PREDNISONE
     Dates: end: 20160311
  4. CYTARABINE. [Suspect]
     Active Substance: CYTARABINE
     Dates: end: 20160216
  5. DAUNORUBICIN [Suspect]
     Active Substance: DAUNORUBICIN
     Dates: end: 20160304
  6. METHOTREXATE [Suspect]
     Active Substance: METHOTREXATE
     Dates: end: 20160311

REACTIONS (12)
  - Somnolence [None]
  - Dyspnoea [None]
  - Generalised tonic-clonic seizure [None]
  - Oxygen saturation decreased [None]
  - Disorientation [None]
  - Pleural effusion [None]
  - Respiratory distress [None]
  - Pseudomonas infection [None]
  - Altered state of consciousness [None]
  - Bronchopulmonary aspergillosis [None]
  - Sinusitis fungal [None]
  - Soft tissue infection [None]

NARRATIVE: CASE EVENT DATE: 20160308
